FAERS Safety Report 4791500-3 (Version None)
Quarter: 2005Q4

REPORT INFORMATION
  Report Type: 
  Country: None (occurrence: None)
  Receive Date: 20051007
  Receipt Date: 20041109
  Transmission Date: 20060501
  Serious: No
  Sender: FDA-Public Use
  Company Number: US-BRISTOL-MYERS SQUIBB COMPANY-12760252

PATIENT
  Sex: Female

DRUGS (1)
  1. AVAPRO [Suspect]
     Route: 048
     Dates: end: 20040701

REACTIONS (2)
  - BURNING SENSATION [None]
  - HEADACHE [None]
